FAERS Safety Report 9257104 (Version 3)
Quarter: 2014Q1

REPORT INFORMATION
  Report Type: Spontaneous
  Country: US (occurrence: None)
  Receive Date: 20121212
  Receipt Date: 20130318
  Transmission Date: 20141002
  Serious: Yes (Other)
  Sender: FDA-Public Use
  Company Number: 1208USA009226

PATIENT
  Age: 69 Year
  Sex: Female

DRUGS (3)
  1. PEGINTRON [Suspect]
     Indication: HEPATITIS C
     Dosage: REDIPEN,80 MICROGRAMS / 0.5 CC
     Dates: start: 20120817
  2. RIBAVIRIN [Suspect]
     Indication: HEPATITIS C
     Dosage: UNK
     Dates: start: 20120817
  3. VICTRELIS [Suspect]
     Indication: HEPATITIS C
     Dosage: UNK
     Dates: start: 20120928

REACTIONS (21)
  - Blood count abnormal [None]
  - Appetite disorder [None]
  - White blood cell count decreased [None]
  - Nausea [None]
  - Fatigue [None]
  - Irritability [None]
  - Fatigue [None]
  - Dysgeusia [None]
  - Vomiting [None]
  - Flatulence [None]
  - Decreased appetite [None]
  - Haemoglobin decreased [None]
  - Weight decreased [None]
  - Myalgia [None]
  - Depression [None]
  - Heart rate increased [None]
  - Back pain [None]
  - Anxiety [None]
  - Decreased appetite [None]
  - Anaemia [None]
  - Leukopenia [None]
